FAERS Safety Report 7534766-9 (Version None)
Quarter: 2011Q2

REPORT INFORMATION
  Report Type: 
  Country: None (occurrence: None)
  Receive Date: 20110609
  Receipt Date: 20080720
  Transmission Date: 20111010
  Serious: Yes (Death, Hospitalization, Other)
  Sender: FDA-Public Use
  Company Number: PHHO2006US04349

PATIENT
  Sex: Male

DRUGS (15)
  1. K-DUR [Concomitant]
  2. ZESTRIL [Concomitant]
  3. ASPIRIN [Concomitant]
  4. COLAZAL [Concomitant]
  5. CLARITIN [Concomitant]
  6. METAMUCIL-2 [Concomitant]
  7. PAXIL [Concomitant]
  8. THIAMINE [Concomitant]
  9. LASIX [Concomitant]
  10. ANUSOL HC [Concomitant]
  11. IMDUR [Concomitant]
  12. FEOSOL [Concomitant]
  13. ZAROXOLYN [Concomitant]
  14. SLOW-MAG [Concomitant]
  15. GLEEVEC [Suspect]
     Indication: CHRONIC MYELOID LEUKAEMIA
     Dosage: 800 MG, QD
     Route: 048
     Dates: start: 20011221

REACTIONS (37)
  - ARRHYTHMIA [None]
  - ASTHENIA [None]
  - ABDOMINAL PAIN UPPER [None]
  - DYSPNOEA [None]
  - DEATH [None]
  - CONFUSIONAL STATE [None]
  - PNEUMONIA [None]
  - HAEMATOCHEZIA [None]
  - MYOCARDIAL INFARCTION [None]
  - CARDIAC DISORDER [None]
  - LOSS OF CONSCIOUSNESS [None]
  - LUNG INFILTRATION [None]
  - ABDOMINAL DISTENSION [None]
  - CARDIAC ENZYMES INCREASED [None]
  - MITRAL VALVE CALCIFICATION [None]
  - RECTAL HAEMORRHAGE [None]
  - CORONARY ARTERY DISEASE [None]
  - ARTERIOSCLEROSIS CORONARY ARTERY [None]
  - AORTIC VALVE CALCIFICATION [None]
  - ABDOMINAL DISCOMFORT [None]
  - DILATATION ATRIAL [None]
  - BLOOD CREATININE INCREASED [None]
  - BREATH SOUNDS ABNORMAL [None]
  - ATELECTASIS [None]
  - RENAL FAILURE [None]
  - PERICARDIAL EFFUSION [None]
  - LEFT VENTRICULAR HYPERTROPHY [None]
  - TRICUSPID VALVE INCOMPETENCE [None]
  - CHEST PAIN [None]
  - NAUSEA [None]
  - PURPURA [None]
  - CONVULSION [None]
  - PROCTITIS [None]
  - MUSCULAR WEAKNESS [None]
  - FATIGUE [None]
  - CORONARY ARTERY STENOSIS [None]
  - ECCHYMOSIS [None]
